FAERS Safety Report 20484378 (Version 1)
Quarter: 2022Q1

REPORT INFORMATION
  Report Type: Spontaneous
  Country: TW (occurrence: TW)
  Receive Date: 20220217
  Receipt Date: 20220217
  Transmission Date: 20220424
  Serious: Yes (Hospitalization, Other)
  Sender: FDA-Public Use
  Company Number: TW-PFIZER INC-202200214748

PATIENT
  Age: 58 Year
  Sex: Female

DRUGS (5)
  1. DACOMITINIB [Suspect]
     Active Substance: DACOMITINIB
     Dosage: 15 MG
     Dates: start: 20211012
  2. DACOMITINIB [Suspect]
     Active Substance: DACOMITINIB
     Dosage: 30 MG 1# QD
     Dates: start: 20211019
  3. DACOMITINIB [Suspect]
     Active Substance: DACOMITINIB
     Dosage: 30 MG 1# QOD
     Dates: start: 20211103, end: 20211201
  4. CYRAMZA [Suspect]
     Active Substance: RAMUCIRUMAB
     Dosage: 500 MG
     Dates: start: 20211118
  5. IRESSA [Suspect]
     Active Substance: GEFITINIB
     Dosage: 250 MG, QD
     Dates: start: 20211202

REACTIONS (5)
  - Cachexia [Unknown]
  - Hepatic function abnormal [Unknown]
  - Rash [Unknown]
  - Diarrhoea [Unknown]
  - Off label use [Unknown]
